FAERS Safety Report 8745997 (Version 3)
Quarter: 2013Q3

REPORT INFORMATION
  Report Type: Spontaneous
  Country: US (occurrence: US)
  Receive Date: 20120827
  Receipt Date: 20130823
  Transmission Date: 20140515
  Serious: Yes (Hospitalization, Other)
  Sender: FDA-Public Use
  Company Number: US-JNJFOC-20120809974

PATIENT
  Age: 34 Year
  Sex: Male
  Weight: 89.36 kg

DRUGS (6)
  1. REMICADE [Suspect]
     Indication: CROHN^S DISEASE
     Dosage: THE PATIENT APPROXIMATELY RECEIVED A TOTAL OF 13 INFUSIONS
     Route: 042
  2. REMICADE [Suspect]
     Indication: CROHN^S DISEASE
     Dosage: 2 YEARS
     Route: 042
     Dates: start: 20120627
  3. REMICADE [Suspect]
     Indication: CROHN^S DISEASE
     Dosage: 2 YEARS, 500 MG TOTAL DOSE
     Route: 042
     Dates: start: 20120502
  4. REMICADE [Suspect]
     Indication: CROHN^S DISEASE
     Dosage: 2 YEARS??0, 2, 6 WEEKS AND THEN ONCE EVERY 8 WEEKS
     Route: 042
     Dates: start: 20101222
  5. IMURAN [Suspect]
     Indication: CROHN^S DISEASE
     Route: 065
  6. METHOTREXATE [Suspect]
     Indication: CROHN^S DISEASE
     Dosage: 25 MG 10 TAB ONCE WEEKLY
     Route: 065

REACTIONS (2)
  - Clear cell renal cell carcinoma [Recovering/Resolving]
  - Hepatic cyst [Unknown]
